FAERS Safety Report 21956486 (Version 1)
Quarter: 2023Q1

REPORT INFORMATION
  Report Type: Spontaneous
  Country: US (occurrence: US)
  Receive Date: 20230206
  Receipt Date: 20230206
  Transmission Date: 20230418
  Serious: No
  Sender: FDA-Public Use
  Company Number: US-BAYER-2023A012564

PATIENT
  Sex: Male

DRUGS (1)
  1. MIRALAX [Suspect]
     Active Substance: POLYETHYLENE GLYCOL 3350
     Indication: Gastrointestinal disorder
     Dosage: 1X DAILY DOSE FOR 5 DAYS , 2 DOSES DAILY AFTER
     Route: 048

REACTIONS (2)
  - Drug ineffective [Recovered/Resolved]
  - Product packaging quantity issue [None]
